FAERS Safety Report 9970583 (Version 1)
Quarter: 2014Q1

REPORT INFORMATION
  Report Type: Spontaneous
  Country: US (occurrence: US)
  Receive Date: 20140306
  Receipt Date: 20140306
  Transmission Date: 20141002
  Serious: No
  Sender: FDA-Public Use
  Company Number: US-ABBVIE-13P-163-1149104-00

PATIENT
  Sex: Female

DRUGS (3)
  1. HUMIRA [Suspect]
     Indication: RHEUMATOID ARTHRITIS
  2. XELJANZ [Concomitant]
     Indication: RHEUMATOID ARTHRITIS
     Dates: start: 20130801
  3. RITUXAN [Concomitant]
     Indication: PRODUCT USED FOR UNKNOWN INDICATION

REACTIONS (12)
  - Weight increased [Unknown]
  - Cough [Unknown]
  - Tendon rupture [Unknown]
  - Blood cholesterol increased [Unknown]
  - Glycosylated haemoglobin increased [Unknown]
  - Pain [Recovering/Resolving]
  - Headache [Not Recovered/Not Resolved]
  - Nausea [Not Recovered/Not Resolved]
  - Intervertebral disc disorder [Not Recovered/Not Resolved]
  - Neuropathy peripheral [Not Recovered/Not Resolved]
  - Thirst [Not Recovered/Not Resolved]
  - Drug hypersensitivity [Unknown]
